FAERS Safety Report 10679658 (Version 2)
Quarter: 2015Q1

REPORT INFORMATION
  Report Type: Report from Study
  Country: JP (occurrence: JP)
  Receive Date: 20141229
  Receipt Date: 20150204
  Transmission Date: 20150720
  Serious: Yes (Hospitalization)
  Sender: FDA-Public Use
  Company Number: JP-TAKEDA-2014TUS014619

PATIENT
  Age: 75 Year
  Sex: Male
  Weight: 72 kg

DRUGS (16)
  1. FEBUXOSTAT. [Suspect]
     Active Substance: FEBUXOSTAT
     Indication: HYPERURICAEMIA
     Dosage: 20 MG, QD
     Route: 048
     Dates: start: 20121019, end: 20140630
  2. FRANDOL S [Concomitant]
     Indication: MYOCARDIAL INFARCTION
     Dosage: 40 MG, QD
     Route: 062
     Dates: start: 201011, end: 20140630
  3. BAYASPIRIN [Concomitant]
     Active Substance: ASPIRIN
     Indication: MYOCARDIAL INFARCTION
     Dosage: 100 MG, QD
     Route: 048
     Dates: start: 201011, end: 20140608
  4. NOVOLIN 30R [Concomitant]
     Active Substance: INSULIN HUMAN
     Indication: DIABETES MELLITUS
     Dosage: 26 IU, QD
     Route: 058
     Dates: start: 20111007, end: 20140630
  5. LYRICA [Concomitant]
     Active Substance: PREGABALIN
     Indication: NEUROPATHY PERIPHERAL
     Dosage: 75 MG, BID
     Route: 048
     Dates: start: 20111019, end: 20140630
  6. GASTER [Concomitant]
     Active Substance: FAMOTIDINE
     Indication: GASTRITIS PROPHYLAXIS
     Dosage: 20 MG, BID
     Route: 048
     Dates: start: 201011, end: 20140403
  7. SIGMART [Concomitant]
     Active Substance: NICORANDIL
     Indication: MYOCARDIAL INFARCTION
     Dosage: 5 MG, TID
     Route: 048
     Dates: start: 201011, end: 20140630
  8. AMLODIN OD [Concomitant]
     Active Substance: AMLODIPINE BESYLATE
     Indication: HYPERTENSION
     Dosage: 5 MG, BID
     Route: 048
     Dates: start: 201011, end: 20140630
  9. ALDACTONE [Concomitant]
     Active Substance: SPIRONOLACTONE
     Indication: MYOCARDIAL INFARCTION
     Dosage: 25 MG, QD
     Route: 048
     Dates: start: 201011, end: 20140630
  10. LOPRESOR                           /00376902/ [Concomitant]
     Indication: MYOCARDIAL INFARCTION
     Dosage: 20 MG, TID
     Route: 048
     Dates: start: 201011, end: 20140630
  11. LASIX [Concomitant]
     Active Substance: FUROSEMIDE
     Indication: MYOCARDIAL INFARCTION
     Dosage: 40 MG, QD
     Route: 048
     Dates: start: 20120727, end: 20140630
  12. LIPITOR [Concomitant]
     Active Substance: ATORVASTATIN CALCIUM
     Indication: HYPERLIPIDAEMIA
     Dosage: 10 MG, QD
     Route: 048
     Dates: start: 201011, end: 20140630
  13. MYOCOR: SPRAY [Concomitant]
     Indication: MYOCARDIAL INFARCTION
     Dosage: 0.3 MILLIGRAM, PRN
     Route: 055
     Dates: start: 20131004, end: 20140630
  14. NEXIUM [Concomitant]
     Active Substance: ESOMEPRAZOLE MAGNESIUM
     Indication: GASTRITIS PROPHYLAXIS
     Dosage: 20 MG, QD
     Route: 048
     Dates: start: 20140404, end: 20140630
  15. ITOROL [Concomitant]
     Active Substance: ISOSORBIDE MONONITRATE
     Indication: MYOCARDIAL INFARCTION
     Dosage: 20 MG, TID
     Route: 048
     Dates: start: 201011, end: 20140630
  16. NOVOLIN 30R [Concomitant]
     Active Substance: INSULIN HUMAN
     Dosage: 5 IU, QD
     Route: 058
     Dates: start: 20111007, end: 20140630

REACTIONS (2)
  - Colitis ischaemic [Recovering/Resolving]
  - Anxiety [Not Recovered/Not Resolved]

NARRATIVE: CASE EVENT DATE: 20140608
